FAERS Safety Report 11482997 (Version 1)
Quarter: 2015Q3

REPORT INFORMATION
  Report Type: Spontaneous
  Country: US (occurrence: None)
  Receive Date: 20150908
  Receipt Date: 20150908
  Transmission Date: 20151125
  Serious: Yes (Other)
  Sender: FDA-Public Use
  Company Number: None

PATIENT
  Age: 37 Year
  Sex: Female
  Weight: 70.31 kg

DRUGS (2)
  1. CYMBALTA [Suspect]
     Active Substance: DULOXETINE HYDROCHLORIDE
     Indication: ANXIETY
     Dosage: 1-3 WEEKS + 1 DAY
     Route: 048
  2. CYMBALTA [Suspect]
     Active Substance: DULOXETINE HYDROCHLORIDE
     Indication: MUSCULOSKELETAL PAIN
     Dosage: 1-3 WEEKS + 1 DAY
     Route: 048

REACTIONS (10)
  - Pain [None]
  - Dizziness [None]
  - Fatigue [None]
  - Headache [None]
  - Back pain [None]
  - Drug ineffective [None]
  - Product substitution issue [None]
  - Anxiety [None]
  - Drug withdrawal syndrome [None]
  - Hyperacusis [None]

NARRATIVE: CASE EVENT DATE: 20150902
